FAERS Safety Report 19237785 (Version 1)
Quarter: 2021Q2

REPORT INFORMATION
  Report Type: Report from Study
  Country: KR (occurrence: KR)
  Receive Date: 20210510
  Receipt Date: 20210510
  Transmission Date: 20210717
  Serious: Yes (Hospitalization)
  Sender: FDA-Public Use
  Company Number: KR-TAKEDA-2021TUS027350

PATIENT
  Age: 53 Year
  Sex: Male
  Weight: 72 kg

DRUGS (12)
  1. CEFTRIAXONE. [Concomitant]
     Active Substance: CEFTRIAXONE
     Dosage: 2 GRAM, QD
     Route: 042
     Dates: start: 20210417, end: 20210426
  2. BIOFLOR [Concomitant]
     Dosage: 250 MILLIGRAM, TID
     Route: 048
     Dates: start: 20191122
  3. VEDOLIZUMAB [Suspect]
     Active Substance: VEDOLIZUMAB
     Dosage: 300 MILLIGRAM
     Route: 042
     Dates: start: 20210127
  4. VEDOLIZUMAB [Suspect]
     Active Substance: VEDOLIZUMAB
     Indication: COLITIS ULCERATIVE
     Dosage: 300 MILLIGRAM
     Route: 042
     Dates: start: 20210113
  5. RAMNOS [Concomitant]
     Dosage: 500 MILLIGRAM, TID
     Dates: start: 20200405
  6. PENTASA [Concomitant]
     Active Substance: MESALAMINE
     Dosage: 4 GRAM, QD
     Route: 048
     Dates: start: 20191119
  7. ASACOL [Concomitant]
     Active Substance: MESALAMINE
     Dosage: 100 MILLILITER, QOD
     Route: 054
     Dates: start: 20191122
  8. VEDOLIZUMAB [Suspect]
     Active Substance: VEDOLIZUMAB
     Dosage: 300 MILLIGRAM
     Route: 042
     Dates: start: 20210217
  9. VEDOLIZUMAB [Suspect]
     Active Substance: VEDOLIZUMAB
     Dosage: 300 MILLIGRAM
     Route: 042
     Dates: start: 20210407
  10. FEROBA YOU [Concomitant]
     Dosage: 256 MILLIGRAM, QD
     Route: 048
     Dates: start: 20210127
  11. AZABIO [Concomitant]
     Dosage: 75 MILLIGRAM, QD
     Route: 048
     Dates: start: 20191119
  12. METRYNAL [Concomitant]
     Dosage: 500 MILLIGRAM, TID
     Route: 042
     Dates: start: 20210420, end: 20210426

REACTIONS (1)
  - Arthritis [Recovered/Resolved]

NARRATIVE: CASE EVENT DATE: 20210416
